FAERS Safety Report 16823909 (Version 1)
Quarter: 2019Q3

REPORT INFORMATION
  Report Type: Spontaneous
  Country: GB (occurrence: GB)
  Receive Date: 20190918
  Receipt Date: 20190918
  Transmission Date: 20191005
  Serious: Yes (Other)
  Sender: FDA-Public Use
  Company Number: GB-JNJFOC-20190816629

PATIENT
  Age: 75 Year
  Sex: Female

DRUGS (2)
  1. HALDOL [Suspect]
     Active Substance: HALOPERIDOL
     Indication: PRODUCT USED FOR UNKNOWN INDICATION
     Dosage: SMALL DOSES
     Route: 065
  2. RISPERDAL [Suspect]
     Active Substance: RISPERIDONE
     Indication: PRODUCT USED FOR UNKNOWN INDICATION
     Dosage: SMALL DOSES
     Route: 065

REACTIONS (5)
  - Fall [Recovering/Resolving]
  - Extrapyramidal disorder [Recovering/Resolving]
  - Urinary incontinence [Recovering/Resolving]
  - Drug intolerance [Unknown]
  - Drug hypersensitivity [Unknown]
